FAERS Safety Report 4896261-5 (Version None)
Quarter: 2006Q1

REPORT INFORMATION
  Report Type: 
  Country: None (occurrence: None)
  Receive Date: 20060126
  Receipt Date: 20060113
  Transmission Date: 20060701
  Serious: Yes (Other)
  Sender: FDA-Public Use
  Company Number: 2005144219

PATIENT
  Age: 47 Year
  Sex: Female
  Weight: 78.4723 kg

DRUGS (14)
  1. ELLENCE [Suspect]
     Indication: BREAST CANCER
     Dosage: SEE IMAGE
     Route: 042
     Dates: start: 20050818
  2. ELLENCE [Suspect]
     Indication: BREAST CANCER
     Dosage: SEE IMAGE
     Route: 042
     Dates: start: 20050901
  3. ELLENCE [Suspect]
     Indication: BREAST CANCER
     Dosage: SEE IMAGE
     Route: 042
     Dates: start: 20050915
  4. FLUOROURACIL [Suspect]
     Dosage: 972 MG (UNKNOWN), INTRAVENOUS, 974 MG (UNKNOWN); INTRAVENOUS, 976 MG (UNKNOWN), INTRAVENOUS
     Route: 042
     Dates: start: 20050818
  5. FLUOROURACIL [Suspect]
     Dosage: 972 MG (UNKNOWN), INTRAVENOUS, 974 MG (UNKNOWN); INTRAVENOUS, 976 MG (UNKNOWN), INTRAVENOUS
     Route: 042
     Dates: start: 20050901
  6. FLUOROURACIL [Suspect]
     Dosage: 972 MG (UNKNOWN), INTRAVENOUS, 974 MG (UNKNOWN); INTRAVENOUS, 976 MG (UNKNOWN), INTRAVENOUS
     Route: 042
     Dates: start: 20050915
  7. CYCLOPHOSPHAMIDE [Suspect]
     Dosage: SEE I AGE
     Route: 042
     Dates: start: 20050818
  8. CYCLOPHOSPHAMIDE [Suspect]
     Dosage: SEE I AGE
     Route: 042
     Dates: start: 20050901
  9. CYCLOPHOSPHAMIDE [Suspect]
     Dosage: SEE I AGE
     Route: 042
     Dates: start: 20050915
  10. COUMADIN [Concomitant]
  11. ALOXI (PALONOSETRON) [Concomitant]
  12. BENADRYL [Concomitant]
  13. DECADRON [Concomitant]
  14. NEULASTA [Concomitant]

REACTIONS (35)
  - ANGIOPATHY [None]
  - BREAST PAIN [None]
  - BURNING SENSATION [None]
  - CATHETER SITE RELATED REACTION [None]
  - CAUSTIC INJURY [None]
  - CHEST PAIN [None]
  - COMMUNICATION DISORDER [None]
  - DEVICE DISLOCATION [None]
  - DEVICE FAILURE [None]
  - DIZZINESS [None]
  - DYSARTHRIA [None]
  - ERYTHEMA [None]
  - INCORRECT ROUTE OF DRUG ADMINISTRATION [None]
  - INFUSION RELATED REACTION [None]
  - INFUSION SITE BRUISING [None]
  - INFUSION SITE EXTRAVASATION [None]
  - INFUSION SITE PAIN [None]
  - INSOMNIA [None]
  - MEDICAL DEVICE COMPLICATION [None]
  - NAUSEA [None]
  - NERVE INJURY [None]
  - OEDEMA PERIPHERAL [None]
  - PAIN [None]
  - PAIN IN EXTREMITY [None]
  - PALLOR [None]
  - SHOCK [None]
  - SHOULDER PAIN [None]
  - SKIN DISCOLOURATION [None]
  - SOFT TISSUE DISORDER [None]
  - SOMNOLENCE [None]
  - STRABISMUS [None]
  - SWELLING [None]
  - VISION BLURRED [None]
  - VOMITING [None]
  - WRONG TECHNIQUE IN DRUG USAGE PROCESS [None]
